FAERS Safety Report 5421177-5 (Version None)
Quarter: 2007Q3

REPORT INFORMATION
  Report Type: 
  Country: None (occurrence: None)
  Receive Date: 20070719
  Receipt Date: 20070418
  Transmission Date: 20080115
  Serious: Yes (Other)
  Sender: FDA-Public Use
  Company Number: HQWYE726720APR07

PATIENT
  Age: 76 Year
  Sex: Male
  Weight: 104.42 kg

DRUGS (3)
  1. ADVIL PM [Suspect]
     Indication: INSOMNIA
     Dosage: 1 TABLET 2X PER 1 DAY ORAL
     Route: 048
     Dates: start: 20070401, end: 20070417
  2. DIAZEPAM [Concomitant]
  3. VERAPAMIL [Concomitant]

REACTIONS (2)
  - INAPPROPRIATE SCHEDULE OF DRUG ADMINISTRATION [None]
  - TREMOR [None]
